FAERS Safety Report 13902155 (Version 1)
Quarter: 2017Q3

REPORT INFORMATION
  Report Type: Spontaneous
  Country: US (occurrence: US)
  Receive Date: 20170824
  Receipt Date: 20170824
  Transmission Date: 20171127
  Serious: No
  Sender: FDA-Public Use
  Company Number: US-ROCHE-1129823

PATIENT
  Sex: Female
  Weight: 83.6 kg

DRUGS (9)
  1. BENADRYL CREAM [Concomitant]
     Active Substance: DIPHENHYDRAMINE\ZINC ACETATE
  2. ACYCLOVIR. [Concomitant]
     Active Substance: ACYCLOVIR
     Route: 065
  3. HERCEPTIN [Suspect]
     Active Substance: TRASTUZUMAB
     Route: 065
  4. TAXOTERE [Concomitant]
     Active Substance: DOCETAXEL
     Dosage: 30/M2
     Route: 065
  5. DIFLUCAN [Concomitant]
     Active Substance: FLUCONAZOLE
     Route: 065
     Dates: end: 20010522
  6. NEOSPORIN [Concomitant]
     Active Substance: BACITRACIN ZINC\NEOMYCIN SULFATE\POLYMYXIN B SULFATE
     Route: 065
  7. TAXOL [Concomitant]
     Active Substance: PACLITAXEL
  8. HERCEPTIN [Suspect]
     Active Substance: TRASTUZUMAB
     Indication: BREAST CANCER
     Route: 065
     Dates: start: 20001212
  9. AREDIA [Concomitant]
     Active Substance: PAMIDRONATE DISODIUM

REACTIONS (4)
  - Tunnel vision [Unknown]
  - Arthropod bite [Unknown]
  - Erythema [Unknown]
  - Paronychia [Unknown]
